FAERS Safety Report 20544934 (Version 6)
Quarter: 2023Q1

REPORT INFORMATION
  Report Type: Report from Study
  Country: US (occurrence: US)
  Receive Date: 20220303
  Receipt Date: 20230329
  Transmission Date: 20230417
  Serious: Yes (Hospitalization, Other)
  Sender: FDA-Public Use
  Company Number: US-JAZZ-2022-US-004147

PATIENT
  Age: 67 Year
  Sex: Male

DRUGS (13)
  1. XYREM [Suspect]
     Active Substance: SODIUM OXYBATE
     Indication: Hypersomnia
     Dosage: UNK
  2. XYWAV [Suspect]
     Active Substance: CALCIUM OXYBATE\MAGNESIUM OXYBATE\POTASSIUM OXYBATE\SODIUM OXYBATE
     Indication: Hypersomnia
     Dosage: UNK
  3. LORAZEPAM [Concomitant]
     Active Substance: LORAZEPAM
     Indication: Product used for unknown indication
     Dosage: UNK
     Dates: start: 19930214
  4. ATORVASTATIN [Concomitant]
     Active Substance: ATORVASTATIN
     Indication: Product used for unknown indication
     Dosage: UNK
     Dates: start: 20211101
  5. LOSARTAN POTASSIUM [Concomitant]
     Active Substance: LOSARTAN POTASSIUM
     Indication: Product used for unknown indication
     Dosage: UNK
     Dates: start: 20200214
  6. HYDROCHLOROTHIAZIDE [Concomitant]
     Active Substance: HYDROCHLOROTHIAZIDE
     Indication: Product used for unknown indication
     Dosage: UNK
     Dates: start: 20200214
  7. MODAFINIL HEUMANN [Concomitant]
     Indication: Product used for unknown indication
     Dosage: UNK
     Dates: start: 20210814
  8. AMLODIPINE BESYLATE [Concomitant]
     Active Substance: AMLODIPINE BESYLATE
     Indication: Product used for unknown indication
     Dosage: UNK
     Dates: start: 20210901
  9. ASPIRIN\CLOPIDOGREL BISULFATE [Concomitant]
     Active Substance: ASPIRIN\CLOPIDOGREL BISULFATE
     Indication: Product used for unknown indication
     Dosage: UNK
     Dates: start: 20211101
  10. METOPROLOL EG [METOPROLOL SUCCINATE] [Concomitant]
     Indication: Product used for unknown indication
     Dosage: UNK
     Dates: start: 20211001
  11. BACLOFEN [Concomitant]
     Active Substance: BACLOFEN
     Indication: Product used for unknown indication
     Dosage: UNK
     Dates: start: 20200214
  12. CELECOXIB [Concomitant]
     Active Substance: CELECOXIB
     Indication: Product used for unknown indication
     Dosage: UNK
     Dates: start: 20150214
  13. FUROSEMIDE [Concomitant]
     Active Substance: FUROSEMIDE
     Indication: Product used for unknown indication
     Dosage: UNK
     Dates: start: 20230110

REACTIONS (18)
  - Cerebrovascular accident [Unknown]
  - Transient ischaemic attack [Unknown]
  - Non-alcoholic steatohepatitis [Not Recovered/Not Resolved]
  - Arteriosclerosis coronary artery [Unknown]
  - Hepatic steatosis [Unknown]
  - Haemorrhoids [Unknown]
  - Muscle tightness [Unknown]
  - Foot deformity [Unknown]
  - Dyspnoea [Unknown]
  - Pollakiuria [Unknown]
  - Mouth ulceration [Unknown]
  - Weight increased [Unknown]
  - Pain [Unknown]
  - Hypertension [Not Recovered/Not Resolved]
  - Obstructive sleep apnoea syndrome [Not Recovered/Not Resolved]
  - Emphysema [Not Recovered/Not Resolved]
  - Hepatic cyst [Not Recovered/Not Resolved]
  - Off label use [Unknown]

NARRATIVE: CASE EVENT DATE: 20211101
